FAERS Safety Report 8238572-1 (Version None)
Quarter: 2012Q1

REPORT INFORMATION
  Report Type: 
  Country: None (occurrence: None)
  Receive Date: 20120327
  Receipt Date: 20120323
  Transmission Date: 20120608
  Serious: Yes (Hospitalization)
  Sender: FDA-Public Use
  Company Number: DK-ABBOTT-12P-044-0918192-00

PATIENT
  Sex: Male

DRUGS (3)
  1. HUMIRA [Suspect]
     Indication: RHEUMATOID ARTHRITIS
     Dates: start: 20110412, end: 20111201
  2. METHOTREXATE [Concomitant]
     Route: 048
     Dates: start: 20110412
  3. METHOTREXATE [Concomitant]
     Indication: PRODUCT USED FOR UNKNOWN INDICATION
     Route: 058
     Dates: start: 20100914, end: 20110412

REACTIONS (3)
  - PYREXIA [None]
  - DERMATITIS PSORIASIFORM [None]
  - RASH PUSTULAR [None]
